FAERS Safety Report 8218779-X (Version None)
Quarter: 2012Q1

REPORT INFORMATION
  Report Type: 
  Country: None (occurrence: None)
  Receive Date: 20120319
  Receipt Date: 20120313
  Transmission Date: 20120608
  Serious: Yes (Death, Hospitalization, Other)
  Sender: FDA-Public Use
  Company Number: PHEH2011US04496

PATIENT
  Sex: Female
  Weight: 81.5 kg

DRUGS (1)
  1. EXJADE [Suspect]
     Dosage: 500 MG, QD
     Route: 048

REACTIONS (28)
  - FAILURE TO THRIVE [None]
  - PIGMENTATION DISORDER [None]
  - GENERALISED OEDEMA [None]
  - ATRIAL FIBRILLATION [None]
  - TACHYCARDIA [None]
  - ARRHYTHMIA [None]
  - RESPIRATORY FAILURE [None]
  - OCULAR ICTERUS [None]
  - GASTRIC HAEMORRHAGE [None]
  - HEPATIC FAILURE [None]
  - AZOTAEMIA [None]
  - NAUSEA [None]
  - JAUNDICE [None]
  - SKIN ULCER [None]
  - THROMBOCYTOPENIA [None]
  - GASTRITIS [None]
  - GASTRIC MUCOSA ERYTHEMA [None]
  - RENAL FAILURE [None]
  - ACUTE RESPIRATORY DISTRESS SYNDROME [None]
  - HYPERBILIRUBINAEMIA [None]
  - CHRONIC MYELOID LEUKAEMIA [None]
  - METABOLIC ACIDOSIS [None]
  - GRAFT VERSUS HOST DISEASE [None]
  - VOMITING [None]
  - ABSCESS [None]
  - RASH ERYTHEMATOUS [None]
  - PNEUMONIA ASPIRATION [None]
  - NODULE [None]
